FAERS Safety Report 17740028 (Version 1)
Quarter: 2020Q2

REPORT INFORMATION
  Report Type: Spontaneous
  Country: US (occurrence: US)
  Receive Date: 20200503
  Receipt Date: 20200503
  Transmission Date: 20200714
  Serious: No
  Sender: FDA-Public Use
  Company Number: None

PATIENT
  Age: 29 Year
  Sex: Female
  Weight: 63 kg

DRUGS (6)
  1. MIRENA [Concomitant]
     Active Substance: LEVONORGESTREL
  2. BOTOX [Concomitant]
     Active Substance: ONABOTULINUMTOXINA
  3. PROMETHAZINE [Concomitant]
     Active Substance: PROMETHAZINE HYDROCHLORIDE
  4. RETIN-A [Concomitant]
     Active Substance: TRETINOIN
  5. REYVOW [Suspect]
     Active Substance: LASMIDITAN
     Indication: MIGRAINE
     Dosage: ?          QUANTITY:1 TABLET(S);?
     Route: 048
     Dates: start: 20200502, end: 20200502
  6. NAPROXEN. [Concomitant]
     Active Substance: NAPROXEN

REACTIONS (4)
  - Panic attack [None]
  - Heart rate increased [None]
  - Feeling abnormal [None]
  - Serotonin syndrome [None]

NARRATIVE: CASE EVENT DATE: 20200502
